FAERS Safety Report 11326099 (Version 2)
Quarter: 2015Q4

REPORT INFORMATION
  Report Type: Report from Study
  Country: DK (occurrence: DK)
  Receive Date: 20150731
  Receipt Date: 20151026
  Transmission Date: 20160304
  Serious: Yes (Death)
  Sender: FDA-Public Use
  Company Number: DK-ACCORD-032540

PATIENT
  Age: 49 Year
  Sex: Female
  Weight: 62 kg

DRUGS (6)
  1. TETRAHYDROCANNABINOL [Concomitant]
     Active Substance: DRONABINOL
     Dosage: DELTA(9)-TETRAHYDROCANNABINOL
  2. PREGABALIN. [Concomitant]
     Active Substance: PREGABALIN
  3. MORPHINE [Suspect]
     Active Substance: MORPHINE
     Indication: PRODUCT USED FOR UNKNOWN INDICATION
  4. QUETIAPINE [Suspect]
     Active Substance: QUETIAPINE
  5. NALOXONE [Concomitant]
     Active Substance: NALOXONE
  6. METHADONE [Concomitant]
     Active Substance: METHADONE HYDROCHLORIDE

REACTIONS (3)
  - Drug level increased [Fatal]
  - Completed suicide [Fatal]
  - Toxicity to various agents [Fatal]
